FAERS Safety Report 7386390-9 (Version None)
Quarter: 2011Q1

REPORT INFORMATION
  Report Type: 
  Country: None (occurrence: None)
  Receive Date: 20110331
  Receipt Date: 20110328
  Transmission Date: 20110831
  Serious: Yes (Other)
  Sender: FDA-Public Use
  Company Number: ES-BAXTER-2009BH018208

PATIENT
  Age: 9 Year
  Sex: Male
  Weight: 28 kg

DRUGS (2)
  1. GAMMAGARD LIQUID [Suspect]
     Route: 042
     Dates: start: 20010419, end: 20091029
  2. GAMMAGARD LIQUID [Suspect]
     Indication: IMMUNODEFICIENCY
     Route: 042
     Dates: start: 20010419, end: 20091029

REACTIONS (3)
  - PYREXIA [None]
  - DYSPNOEA [None]
  - CHILLS [None]
